FAERS Safety Report 10491715 (Version 1)
Quarter: 2014Q4

REPORT INFORMATION
  Report Type: Spontaneous
  Country: US (occurrence: US)
  Receive Date: 20141002
  Receipt Date: 20141002
  Transmission Date: 20150528
  Serious: No
  Sender: FDA-Public Use
  Company Number: US-GLAXOSMITHKLINE-A1058516A

PATIENT
  Sex: Male

DRUGS (3)
  1. VENTOLIN [Suspect]
     Active Substance: ALBUTEROL SULFATE
     Indication: ASTHMA
     Route: 055
  2. SEREVENT [Suspect]
     Active Substance: SALMETEROL XINAFOATE
     Indication: ASTHMA
     Route: 055
  3. ADVAIR HFA [Suspect]
     Active Substance: FLUTICASONE PROPIONATE\SALMETEROL XINAFOATE
     Indication: ASTHMA
     Route: 055
     Dates: end: 2003

REACTIONS (4)
  - Drug ineffective [Unknown]
  - Headache [Not Recovered/Not Resolved]
  - Migraine [Unknown]
  - Adverse event [Unknown]
